FAERS Safety Report 7189515-3 (Version None)
Quarter: 2010Q4

REPORT INFORMATION
  Report Type: 
  Country: None (occurrence: None)
  Receive Date: 20101223
  Receipt Date: 20101213
  Transmission Date: 20110411
  Serious: Yes (Death)
  Sender: FDA-Public Use
  Company Number: GB-BIOGENIDEC-2010BI032524

PATIENT
  Age: 54 Year
  Sex: Male

DRUGS (7)
  1. AVONEX [Suspect]
     Indication: PRODUCT USED FOR UNKNOWN INDICATION
     Dates: start: 20100323
  2. SENNA [Concomitant]
  3. IBUPROFEN [Concomitant]
  4. FLUOXETINE [Concomitant]
  5. LACTULOSE [Concomitant]
  6. GABAPENTIN [Concomitant]
  7. CO-CODAMOL [Concomitant]

REACTIONS (1)
  - METASTATIC MALIGNANT MELANOMA [None]
